FAERS Safety Report 4659851-0 (Version None)
Quarter: 2005Q2

REPORT INFORMATION
  Report Type: 
  Country: None (occurrence: None)
  Receive Date: 20050502
  Receipt Date: 20050309
  Transmission Date: 20051028
  Serious: Yes (Hospitalization, Other)
  Sender: FDA-Public Use
  Company Number: 200511903US

PATIENT
  Age: 62 Year
  Sex: Female

DRUGS (2)
  1. KETEK [Suspect]
     Indication: BRONCHITIS
     Dosage: 800 MG QD PO
     Route: 048
     Dates: start: 20050308, end: 20050309
  2. KETEK [Suspect]
     Indication: SINUSITIS
     Dosage: 800 MG QD PO
     Route: 048
     Dates: start: 20050308, end: 20050309

REACTIONS (5)
  - CHOLESTASIS [None]
  - LIVER FUNCTION TEST [None]
  - PNEUMONIA [None]
  - PYREXIA [None]
  - URINE ANALYSIS ABNORMAL [None]
